FAERS Safety Report 8409556-5 (Version None)
Quarter: 2012Q2

REPORT INFORMATION
  Report Type: 
  Country: None (occurrence: None)
  Receive Date: 20120531
  Receipt Date: 20120531
  Transmission Date: 20120825
  Serious: No
  Sender: FDA-Public Use
  Company Number: None

PATIENT
  Sex: Female

DRUGS (1)
  1. LEVAQUIN [Suspect]

REACTIONS (8)
  - DIZZINESS [None]
  - HEADACHE [None]
  - PAIN [None]
  - CHEST DISCOMFORT [None]
  - HYPOAESTHESIA [None]
  - NAUSEA [None]
  - MUSCLE SPASMS [None]
  - SWELLING [None]
